FAERS Safety Report 16920606 (Version 1)
Quarter: 2019Q4

REPORT INFORMATION
  Report Type: Spontaneous
  Country: DE (occurrence: GB)
  Receive Date: 20191015
  Receipt Date: 20191015
  Transmission Date: 20200122
  Serious: Yes (Death, Life-Threatening)
  Sender: FDA-Public Use
  Company Number: DE-PFIZER INC-2019440888

PATIENT
  Age: 45 Year
  Sex: Male
  Weight: 88 kg

DRUGS (65)
  1. PREDNISOLONE. [Suspect]
     Active Substance: PREDNISOLONE
     Indication: CONJUNCTIVITIS
     Dosage: UNK
     Route: 061
     Dates: start: 19981204, end: 19981204
  2. REMERGIL [Suspect]
     Active Substance: MIRTAZAPINE
     Indication: DEPRESSION
     Dosage: 15 MG, UNK
     Route: 048
     Dates: start: 19981126, end: 19981130
  3. GENTAMYCIN [Suspect]
     Active Substance: GENTAMICIN
     Indication: CONJUNCTIVITIS
     Dosage: 2 GTT, UNK (1 DROP PER EYE TWICE DAILY)
     Route: 047
     Dates: start: 19981129, end: 19981129
  4. SANDIMMUN [Concomitant]
     Active Substance: CYCLOSPORINE
     Indication: BONE MARROW TRANSPLANT
     Dosage: UNK
     Route: 042
  5. ACC [ACETYLCYSTEINE] [Concomitant]
     Active Substance: ACETYLCYSTEINE
     Dosage: UNK
     Route: 042
     Dates: start: 19981117, end: 19981119
  6. SOLU DECORTIN H [Concomitant]
     Active Substance: PREDNISOLONE SODIUM SUCCINATE
     Indication: GRAFT VERSUS HOST DISEASE
     Dosage: 25 MG, UNK
     Route: 042
     Dates: start: 19981119, end: 19981121
  7. VANCOMYCIN [Concomitant]
     Active Substance: VANCOMYCIN
     Indication: INFECTION
     Dosage: 0.5 G, UNK (INTERMITTENT THERAPY)
     Route: 042
     Dates: start: 19981111
  8. FUROSEMIDE. [Suspect]
     Active Substance: FUROSEMIDE
     Dosage: 10 MG, UNK
     Route: 042
     Dates: start: 19981202, end: 19981203
  9. NOVALGIN (METAMIZOLE SODIUM) [Suspect]
     Active Substance: METAMIZOLE SODIUM
     Dosage: UNK
     Route: 042
     Dates: start: 19981124, end: 19981128
  10. NOVALGIN (METAMIZOLE SODIUM) [Suspect]
     Active Substance: METAMIZOLE SODIUM
     Dosage: 1 G, UNK
     Route: 042
     Dates: start: 19981208
  11. ZIENAM [Suspect]
     Active Substance: CILASTATIN SODIUM\IMIPENEM
     Indication: INFECTION
     Dosage: 500 MG, UNK
     Route: 042
     Dates: start: 19981205, end: 19990101
  12. KONAKION [Suspect]
     Active Substance: PHYTONADIONE
     Indication: COAGULOPATHY
     Dosage: UNK (IRREGULAR/UNKNOWN DOSING)
     Route: 042
     Dates: start: 19981123, end: 19981207
  13. KONAKION [Suspect]
     Active Substance: PHYTONADIONE
     Dosage: 10 MG, UNK
     Route: 042
     Dates: start: 19981112
  14. URBASON [METHYLPREDNISOLONE SODIUM SUCCINATE] [Suspect]
     Active Substance: METHYLPREDNISOLONE SODIUM SUCCINATE
     Indication: GRAFT VERSUS HOST DISEASE
     Dosage: UNK
     Route: 042
     Dates: start: 19981121, end: 19990101
  15. CALCIUM [Concomitant]
     Active Substance: CALCIUM
     Indication: BLOOD CALCIUM DECREASED
     Dosage: UNK
     Route: 042
  16. GLUCOSE [Concomitant]
     Active Substance: DEXTROSE
     Indication: PARENTERAL NUTRITION
     Dosage: 10, 40 OR 70% SOLUTIONS.
     Route: 042
  17. SOLU-DECORTIN [Concomitant]
     Active Substance: PREDNISOLONE SODIUM SUCCINATE
     Indication: GRAFT VERSUS HOST DISEASE
     Dosage: 25 MG, UNK
     Route: 042
     Dates: start: 19981119, end: 19981121
  18. KALIUMCHLORID [Concomitant]
     Active Substance: POTASSIUM CHLORIDE
     Indication: HYPOKALAEMIA
     Dosage: INTERMITTENT THERAPY
     Route: 042
  19. SODIUM CHLORIDE. [Concomitant]
     Active Substance: SODIUM CHLORIDE
     Indication: HYPONATRAEMIA
     Dosage: UNK
     Route: 042
     Dates: start: 19981113
  20. FUROSEMIDE. [Suspect]
     Active Substance: FUROSEMIDE
     Dosage: 10 MG, UNK
     Route: 042
     Dates: start: 19981208
  21. NOVALGIN (METAMIZOLE SODIUM) [Suspect]
     Active Substance: METAMIZOLE SODIUM
     Dosage: 1 G, UNK
     Route: 042
     Dates: start: 19981111, end: 19981121
  22. FORTUM [CEFTAZIDIME PENTAHYDRATE] [Suspect]
     Active Substance: CEFTAZIDIME
     Dosage: 2 G, UNK
     Route: 042
     Dates: start: 19981126, end: 19981205
  23. AMBISOME [Suspect]
     Active Substance: AMPHOTERICIN B
     Indication: FUNGAL INFECTION
     Dosage: UNK
     Route: 042
     Dates: start: 19981122, end: 19990101
  24. AMPHO-MORONAL [Concomitant]
     Active Substance: AMPHOTERICIN B
     Dosage: 1 DF, UNK
     Route: 048
     Dates: end: 19981110
  25. MAGNESIUM [Concomitant]
     Active Substance: MAGNESIUM
     Indication: BLOOD MAGNESIUM DECREASED
     Dosage: INTERMITTENT THERAPY
     Route: 042
     Dates: end: 19981202
  26. ACTRAPID [Concomitant]
     Active Substance: INSULIN HUMAN
     Indication: DIABETES MELLITUS
     Dosage: 2 IU, UNK
     Route: 042
     Dates: start: 19981115, end: 19981207
  27. NEUPOGEN [Suspect]
     Active Substance: FILGRASTIM
     Indication: BONE MARROW TRANSPLANT
     Dosage: 480 UG, UNK
     Route: 042
     Dates: start: 19981127, end: 19981130
  28. FUROSEMIDE. [Suspect]
     Active Substance: FUROSEMIDE
     Dosage: 10 MG, UNK
     Route: 042
     Dates: start: 19981205, end: 19981205
  29. REMERGIL [Suspect]
     Active Substance: MIRTAZAPINE
     Dosage: 15 MG, UNK
     Route: 048
     Dates: start: 19981203, end: 19981203
  30. RESONIUM A [Suspect]
     Active Substance: SODIUM POLYSTYRENE SULFONATE
     Indication: HYPERKALAEMIA
     Dosage: 30 G, QD
     Route: 048
     Dates: start: 19981129, end: 19981129
  31. DOPAMIN [DOPAMINE HYDROCHLORIDE] [Suspect]
     Active Substance: DOPAMINE HYDROCHLORIDE
     Indication: HYPOTENSION
     Dosage: 1.2 ML, UNK
     Route: 042
     Dates: start: 19981119, end: 19990101
  32. CIPROBAY [CIPROFLOXACIN HYDROCHLORIDE;HYDROCORTISONE] [Suspect]
     Active Substance: CIPROFLOXACIN HYDROCHLORIDE\HYDROCORTISONE
     Indication: CYSTITIS
     Dosage: 400 MG, UNK
     Route: 042
     Dates: start: 19981130, end: 19990101
  33. TOBRAMYCIN. [Suspect]
     Active Substance: TOBRAMYCIN
     Indication: INFECTION
     Dosage: 520 MG, UNK
     Route: 042
     Dates: start: 19981121, end: 19981121
  34. MTX [METHOTREXATE SODIUM] [Concomitant]
     Active Substance: METHOTREXATE SODIUM
     Indication: BONE MARROW TRANSPLANT
     Dosage: 10 MG, UNK
     Route: 042
     Dates: start: 19981111, end: 19981111
  35. ZOVIRAX [Concomitant]
     Active Substance: ACYCLOVIR
     Indication: PROPHYLAXIS
     Dosage: 500 MG, UNK
     Route: 042
     Dates: end: 19981122
  36. CLONT [METRONIDAZOLE] [Concomitant]
     Active Substance: METRONIDAZOLE
     Indication: INFECTION
     Dosage: 500 MG, UNK
     Route: 042
  37. PEPDUL [Concomitant]
     Active Substance: FAMOTIDINE
     Indication: PROPHYLAXIS
     Dosage: 40 MG, UNK
     Route: 042
     Dates: end: 19981110
  38. DIFLUCAN [Suspect]
     Active Substance: FLUCONAZOLE
     Indication: ANTIFUNGAL PROPHYLAXIS
     Dosage: 200 MG, UNK
     Route: 042
     Dates: end: 19981119
  39. PREDNISOLONE. [Suspect]
     Active Substance: PREDNISOLONE
     Dosage: UNK
     Route: 061
     Dates: start: 19981207, end: 19990101
  40. BACTRIM [Suspect]
     Active Substance: SULFAMETHOXAZOLE\TRIMETHOPRIM
     Dosage: 160 MG, UNK
     Route: 042
     Dates: start: 19981204, end: 19981206
  41. ZIENAM [Suspect]
     Active Substance: CILASTATIN SODIUM\IMIPENEM
     Dosage: 500 MG, UNK
     Route: 042
     Dates: start: 19981121, end: 19981128
  42. PROSTAVASIN [Concomitant]
     Active Substance: ALPROSTADIL ALFADEX
     Indication: CARDIOVASCULAR DISORDER
     Dosage: 500 G, UNK
     Route: 042
     Dates: start: 19981111, end: 19981119
  43. VOMEX A [Suspect]
     Active Substance: DIMENHYDRINATE
     Indication: NAUSEA
     Dosage: UNK
     Route: 042
     Dates: start: 19981118, end: 19981130
  44. NOVALGIN (METAMIZOLE SODIUM) [Suspect]
     Active Substance: METAMIZOLE SODIUM
     Indication: PAIN
     Dosage: 1 G, UNK
     Route: 042
     Dates: start: 19981205, end: 19981205
  45. AMPHO-MORONAL [Concomitant]
     Active Substance: AMPHOTERICIN B
     Indication: ANTIFUNGAL PROPHYLAXIS
     Dosage: 4 ML, UNK
     Route: 048
  46. DIPEPTAMIN [Concomitant]
     Indication: PARENTERAL NUTRITION
     Dosage: INTERMITTENT THERAPY
     Route: 042
     Dates: end: 19981128
  47. INZOLEN [Concomitant]
     Active Substance: MAGNESIUM ASPARTATE\POTASSIUM ASPARTATE
     Indication: ELECTROLYTE SUBSTITUTION THERAPY
     Dosage: UNK
     Route: 042
  48. SODIUM HYDROGEN CARBONATE [Concomitant]
     Active Substance: SODIUM BICARBONATE
     Indication: ACIDOSIS
     Dosage: UNK (INTERMITTENT THERAPY)
     Route: 042
     Dates: start: 19981201, end: 19981206
  49. TARIVID [OFLOXACIN HYDROCHLORIDE] [Concomitant]
     Indication: INFECTION
     Dosage: 200 MG, UNK
     Route: 042
     Dates: end: 19981110
  50. BACTRIM [Suspect]
     Active Substance: SULFAMETHOXAZOLE\TRIMETHOPRIM
     Indication: INFECTION
     Dosage: 160 MG, UNK
     Route: 042
     Dates: start: 19981127, end: 19981129
  51. BACTRIM [Suspect]
     Active Substance: SULFAMETHOXAZOLE\TRIMETHOPRIM
     Dosage: 160 MG, UNK
     Route: 042
     Dates: start: 19981113, end: 19981120
  52. LASIX [Suspect]
     Active Substance: FUROSEMIDE
     Indication: OEDEMA
     Dosage: 40 MG, UNK
     Route: 042
     Dates: start: 19981126, end: 19981126
  53. CANDIO-HERMAL [Concomitant]
     Active Substance: NYSTATIN
     Indication: CANDIDA INFECTION
     Dosage: UNK
     Route: 061
     Dates: start: 19981204, end: 19981204
  54. AMPHOTERICIN B. [Concomitant]
     Active Substance: AMPHOTERICIN B
     Indication: FUNGAL INFECTION
     Dosage: UNK (LEVEL 1/DAY.)
     Route: 042
     Dates: start: 19981117, end: 19981121
  55. MORPHIN [Concomitant]
     Active Substance: MORPHINE
     Indication: SEDATION
     Dosage: 0.5 MG, UNK
     Route: 042
     Dates: start: 19981111, end: 19981123
  56. FORTUM [CEFTAZIDIME PENTAHYDRATE] [Suspect]
     Active Substance: CEFTAZIDIME
     Indication: INFECTION
     Dosage: 2 G, UNK
     Route: 042
     Dates: start: 19981111, end: 19981120
  57. CYMEVAN [Suspect]
     Active Substance: GANCICLOVIR
     Dosage: 225 MG, UNK
     Route: 042
     Dates: start: 19981127, end: 19990101
  58. VITAMINS NOS [Concomitant]
     Active Substance: VITAMINS
     Dosage: UNK
     Route: 042
  59. AMPHO-MORONAL [Concomitant]
     Active Substance: AMPHOTERICIN B
     Dosage: 4 ML, UNK
     Route: 055
     Dates: start: 19981111
  60. DOLANTIN [Concomitant]
     Active Substance: MEPERIDINE
     Indication: SEDATION
     Dosage: 50 MG, UNK (INTERMITTENT THERAPY)
     Route: 042
     Dates: start: 19981111, end: 19981121
  61. PENTAGLOBIN [Concomitant]
     Active Substance: HUMAN IMMUNOGLOBULIN G
     Indication: BONE MARROW TRANSPLANT
     Dosage: 20 G, UNK (GIVEN ON 15, 19, 26 NOV ONLY)
     Route: 042
     Dates: start: 19981115, end: 19981126
  62. GRANOCYTE [Concomitant]
     Active Substance: LENOGRASTIM
     Indication: BONE MARROW TRANSPLANT
     Dosage: UNK
     Route: 042
     Dates: end: 19981128
  63. TAVEGIL [CLEMASTINE FUMARATE] [Concomitant]
     Active Substance: CLEMASTINE FUMARATE
     Indication: GRAFT VERSUS HOST DISEASE
     Dosage: UNK
     Route: 042
     Dates: start: 19981118, end: 19981121
  64. TAVOR (LORAZEPAM) [Suspect]
     Active Substance: LORAZEPAM
     Indication: SEDATION
     Dosage: 1 MG, UNK
     Route: 042
     Dates: end: 19981125
  65. FUROSEMIDE. [Suspect]
     Active Substance: FUROSEMIDE
     Indication: OEDEMA
     Dosage: 10 MG, UNK
     Route: 042
     Dates: start: 19981013, end: 19981029

REACTIONS (6)
  - Cardiac failure [Fatal]
  - Pneumonia [Fatal]
  - Sepsis [Fatal]
  - Multiple organ dysfunction syndrome [Fatal]
  - Graft versus host disease [Fatal]
  - Toxic epidermal necrolysis [Fatal]

NARRATIVE: CASE EVENT DATE: 19981121
